FAERS Safety Report 16638250 (Version 2)
Quarter: 2019Q3

REPORT INFORMATION
  Report Type: Spontaneous
  Country: US (occurrence: US)
  Receive Date: 20190726
  Receipt Date: 20190822
  Transmission Date: 20191004
  Serious: No
  Sender: FDA-Public Use
  Company Number: US-JNJFOC-20190727758

PATIENT
  Sex: Female
  Weight: 47.67 kg

DRUGS (1)
  1. DURAGESIC [Suspect]
     Active Substance: FENTANYL
     Indication: ARACHNOIDITIS
     Route: 062
     Dates: start: 2003

REACTIONS (8)
  - Pruritus [Recovered/Resolved]
  - Product complaint [Unknown]
  - Skin discolouration [Recovered/Resolved]
  - Therapeutic response decreased [Unknown]
  - Sciatica [Unknown]
  - Pain in extremity [Not Recovered/Not Resolved]
  - Neuralgia [Unknown]
  - Psychomotor hyperactivity [Unknown]
